FAERS Safety Report 16061373 (Version 1)
Quarter: 2019Q1

REPORT INFORMATION
  Report Type: Spontaneous
  Country: US (occurrence: US)
  Receive Date: 20190211
  Receipt Date: 20190211
  Transmission Date: 20190418
  Serious: Yes (Hospitalization)
  Sender: FDA-Public Use
  Company Number: None

PATIENT
  Sex: Female

DRUGS (7)
  1. NATREXONE [Concomitant]
  2. ZOLOFT [Concomitant]
     Active Substance: SERTRALINE HYDROCHLORIDE
  3. OCREVUS [Suspect]
     Active Substance: OCRELIZUMAB
     Indication: MULTIPLE SCLEROSIS
     Dosage: 600MG Q6M INTRAVENOUSLY
     Route: 042
     Dates: start: 20180604
  4. NEURONTIN [Concomitant]
     Active Substance: GABAPENTIN
  5. AMPYRA [Concomitant]
     Active Substance: DALFAMPRIDINE
  6. TRAMADOL. [Concomitant]
     Active Substance: TRAMADOL
  7. BACLOFEN. [Concomitant]
     Active Substance: BACLOFEN

REACTIONS (3)
  - Foot operation [None]
  - Fatigue [None]
  - Asthenia [None]
